FAERS Safety Report 21893392 (Version 1)
Quarter: 2023Q1

REPORT INFORMATION
  Report Type: Spontaneous
  Country: US (occurrence: US)
  Receive Date: 20230121
  Receipt Date: 20230121
  Transmission Date: 20230418
  Serious: Yes (Hospitalization)
  Sender: FDA-Public Use
  Company Number: US-PIRAMAL PHARMA LIMITED-2022-PEL-000050

PATIENT

DRUGS (1)
  1. GABLOFEN [Suspect]
     Active Substance: BACLOFEN
     Indication: Product used for unknown indication
     Dosage: 66 MICROGRAM PER DAY
     Route: 037

REACTIONS (2)
  - Overdose [Recovered/Resolved]
  - Device infusion issue [Recovered/Resolved]
